FAERS Safety Report 9014795 (Version 1)
Quarter: 2013Q1

REPORT INFORMATION
  Report Type: Spontaneous
  Country: FR (occurrence: FR)
  Receive Date: 20130115
  Receipt Date: 20130115
  Transmission Date: 20140127
  Serious: Yes (Hospitalization)
  Sender: FDA-Public Use
  Company Number: PHHY2013FR002778

PATIENT
  Age: 58 Year
  Sex: Male

DRUGS (11)
  1. VOLTARENE [Suspect]
     Dosage: UNK UKN, UNK
     Route: 048
     Dates: end: 201210
  2. DOXYCYCLINE [Suspect]
     Dosage: UNK UKN, UNK
     Dates: start: 20120820, end: 201210
  3. TARCEVA [Suspect]
     Dosage: 250 MG, QD
     Dates: start: 20120820, end: 20121125
  4. DIFFU K [Suspect]
     Indication: HYPOKALAEMIA
     Dosage: 2 DF, BID
     Route: 048
  5. KEPPRA [Concomitant]
     Dosage: UNK UKN, UNK
  6. INEXIUM//ESOMEPRAZOLE MAGNESIUM [Concomitant]
     Dosage: UNK UKN, UNK
  7. XATRAL [Concomitant]
     Dosage: UNK UKN, UNK
  8. GARDENAL [Concomitant]
     Dosage: UNK UKN, UNK
  9. SPASFON [Concomitant]
     Dosage: UNK UKN, UNK
  10. DEBRIDAT [Concomitant]
     Dosage: UNK UKN, UNK
  11. GABAPENTINE [Concomitant]
     Dosage: UNK UKN, UNK

REACTIONS (4)
  - Gastrointestinal haemorrhage [Not Recovered/Not Resolved]
  - Rectal haemorrhage [Not Recovered/Not Resolved]
  - Haematemesis [Not Recovered/Not Resolved]
  - Melaena [Not Recovered/Not Resolved]
